FAERS Safety Report 6313137-7 (Version None)
Quarter: 2009Q3

REPORT INFORMATION
  Report Type: 
  Country: None (occurrence: None)
  Receive Date: 20090818
  Receipt Date: 20090811
  Transmission Date: 20100115
  Serious: Yes (Disabling, Other)
  Sender: FDA-Public Use
  Company Number: JP-AVENTIS-200911776JP

PATIENT
  Age: 60 Year
  Sex: Female
  Weight: 55 kg

DRUGS (11)
  1. TAXOTERE [Suspect]
     Route: 041
     Dates: start: 20090416, end: 20090416
  2. PRIMPERAN                          /00041901/ [Concomitant]
     Route: 048
  3. GASTER [Concomitant]
     Route: 048
     Dates: start: 20090417, end: 20090421
  4. MAGLAX [Concomitant]
     Route: 048
  5. ANDERM [Concomitant]
  6. CIPROXAN [Concomitant]
     Route: 048
  7. SELBEX [Concomitant]
     Route: 048
  8. APHTASOLON [Concomitant]
  9. KYTRIL                             /01178101/ [Concomitant]
     Indication: PREMEDICATION
     Route: 041
     Dates: start: 20090416, end: 20090416
  10. DECADRON [Concomitant]
     Indication: PREMEDICATION
     Route: 041
     Dates: start: 20090416, end: 20090416
  11. DECADRON [Concomitant]
     Route: 048
     Dates: start: 20090417, end: 20090418

REACTIONS (1)
  - URINARY RETENTION [None]
